FAERS Safety Report 6594118-5 (Version None)
Quarter: 2010Q1

REPORT INFORMATION
  Report Type: 
  Country: None (occurrence: None)
  Receive Date: 20100222
  Receipt Date: 20100212
  Transmission Date: 20100710
  Serious: Yes (Life-Threatening, Hospitalization, Other)
  Sender: FDA-Public Use
  Company Number: JP-ROCHE-683584

PATIENT
  Age: 58 Year
  Sex: Male

DRUGS (4)
  1. AVASTIN [Suspect]
     Indication: RECTAL CANCER
     Dosage: FORM: INJECTION
     Route: 041
     Dates: start: 20100122, end: 20100122
  2. LEVOFOLINATE [Concomitant]
     Route: 041
     Dates: start: 20100122, end: 20100122
  3. 5-FU [Concomitant]
     Route: 040
     Dates: start: 20100122, end: 20100122
  4. 5-FU [Concomitant]
     Dosage: STOP DATE: JANUARY 2010.
     Route: 041
     Dates: start: 20100122

REACTIONS (6)
  - ACUTE RESPIRATORY FAILURE [None]
  - ALTERED STATE OF CONSCIOUSNESS [None]
  - CEREBRAL INFARCTION [None]
  - PULMONARY INFARCTION [None]
  - PULMONARY THROMBOSIS [None]
  - RESPIRATORY FAILURE [None]
